FAERS Safety Report 25076405 (Version 1)
Quarter: 2025Q1

REPORT INFORMATION
  Report Type: Other
  Country: CA (occurrence: CA)
  Receive Date: 20250313
  Receipt Date: 20250313
  Transmission Date: 20250409
  Serious: Yes (Life-Threatening, Hospitalization, Other)
  Sender: PFIZER
  Company Number: CA-PFIZER INC-202500053217

PATIENT
  Age: 7 Month
  Sex: Female

DRUGS (13)
  1. BLEOMYCIN SULFATE [Suspect]
     Active Substance: BLEOMYCIN SULFATE
     Indication: Pleural effusion
     Route: 065
  2. SIROLIMUS [Suspect]
     Active Substance: SIROLIMUS
     Indication: Lymphangioma
     Dosage: 2 MG/M2 1 EVERY .5 DAYS
     Route: 048
  3. SIROLIMUS [Suspect]
     Active Substance: SIROLIMUS
     Dosage: 0.8 MG/M2 1 EVERY .5 DAYS
     Route: 048
  4. SIROLIMUS [Suspect]
     Active Substance: SIROLIMUS
     Dosage: 1.5 MG/M2 1 EVERY .5 DAYS
     Route: 048
  5. SIROLIMUS [Suspect]
     Active Substance: SIROLIMUS
     Route: 048
  6. VINCRISTINE SULFATE [Suspect]
     Active Substance: VINCRISTINE SULFATE
     Indication: Lymphangioma
     Dosage: 0.05 MG/KG, WEEKLY
     Route: 042
  7. DOXYCYCLINE [Suspect]
     Active Substance: DOXYCYCLINE
     Indication: Pleural effusion
     Route: 065
  8. INTERFERON [Suspect]
     Active Substance: INTERFERON
     Indication: Lymphangioma
     Route: 042
  9. OCTREOTIDE [Suspect]
     Active Substance: OCTREOTIDE
     Indication: Pleural effusion
     Route: 065
  10. PREDNISONE [Suspect]
     Active Substance: PREDNISONE
     Indication: Lymphangioma
     Route: 042
  11. PREDNISONE [Suspect]
     Active Substance: PREDNISONE
     Dosage: 1 MG/KG, 1X/DAY
     Route: 048
  12. PROPRANOLOL [Suspect]
     Active Substance: PROPRANOLOL HYDROCHLORIDE
     Indication: Lymphangioma
     Dosage: 1 MG/KG, 1X/DAY
     Route: 048
  13. TRAMETINIB [Suspect]
     Active Substance: TRAMETINIB
     Indication: Lymphangioma
     Dosage: 0.025 MG/KG, 1X/DAY
     Route: 065

REACTIONS (14)
  - Adrenal suppression [Recovered/Resolved]
  - Cataract subcapsular [Recovered/Resolved]
  - Cushingoid [Recovered/Resolved]
  - Cytomegalovirus infection [Recovered/Resolved]
  - Drug ineffective for unapproved indication [Recovered/Resolved]
  - Glomerulosclerosis [Recovered/Resolved]
  - Hypertension [Recovered/Resolved]
  - Infection [Recovered/Resolved]
  - Neuropathy peripheral [Recovered/Resolved]
  - Osteoporosis [Recovered/Resolved]
  - Proteinuria [Recovered/Resolved]
  - Pulmonary toxicity [Recovered/Resolved]
  - Renal disorder [Recovered/Resolved]
  - Off label use [Unknown]
